FAERS Safety Report 9245537 (Version 1)
Quarter: 2013Q2

REPORT INFORMATION
  Report Type: Spontaneous
  Country: US (occurrence: US)
  Receive Date: 20130422
  Receipt Date: 20130422
  Transmission Date: 20140414
  Serious: No
  Sender: FDA-Public Use
  Company Number: US-PFIZER INC-2013123197

PATIENT
  Age: 69 Year
  Sex: Male
  Weight: 90.7 kg

DRUGS (5)
  1. NEURONTIN [Suspect]
     Indication: PAIN
     Dosage: 300 MG, 3X/DAY
     Route: 048
     Dates: start: 2011
  2. NEURONTIN [Suspect]
     Indication: DIABETIC NEUROPATHY
  3. QUINAPRIL [Concomitant]
     Indication: HYPERTENSION
     Dosage: UNK
  4. METFORMIN [Concomitant]
     Indication: DIABETES MELLITUS
     Dosage: UNK
  5. GLYBURIDE [Concomitant]
     Indication: DIABETES MELLITUS
     Dosage: UNK

REACTIONS (5)
  - Ejaculation delayed [Unknown]
  - Erectile dysfunction [Unknown]
  - Herpes zoster [Unknown]
  - Drug ineffective for unapproved indication [Unknown]
  - Off label use [Unknown]
